FAERS Safety Report 8011755-1 (Version None)
Quarter: 2011Q4

REPORT INFORMATION
  Report Type: 
  Country: None (occurrence: None)
  Receive Date: 20111228
  Receipt Date: 20111219
  Transmission Date: 20120403
  Serious: Yes (Hospitalization)
  Sender: FDA-Public Use
  Company Number: US-BAYER-2011-032910

PATIENT
  Age: 25 Year
  Sex: Female
  Weight: 63.492 kg

DRUGS (8)
  1. YASMIN [Suspect]
     Indication: PREMENSTRUAL SYNDROME
     Dosage: UNK
     Dates: start: 20030101, end: 20090101
  2. AMOXICILLIN [Concomitant]
     Dosage: 500 MG, TID
  3. LORATADINE [Concomitant]
  4. ZYRTEC [Concomitant]
  5. ALBUTEROL [Concomitant]
     Dosage: UNK UNK, PRN
     Route: 055
  6. ACETAMINOPHEN [Concomitant]
  7. OMEPRAZOLE [Concomitant]
  8. IBUPROFEN [Concomitant]

REACTIONS (5)
  - HEPATIC NEOPLASM [None]
  - FOCAL NODULAR HYPERPLASIA [None]
  - CHOLECYSTITIS CHRONIC [None]
  - GALLBLADDER DISORDER [None]
  - PAIN [None]
